FAERS Safety Report 7679674-8 (Version None)
Quarter: 2011Q3

REPORT INFORMATION
  Report Type: 
  Country: None (occurrence: None)
  Receive Date: 20110812
  Receipt Date: 20110802
  Transmission Date: 20111222
  Serious: Yes (Other)
  Sender: FDA-Public Use
  Company Number: FR-VERTEX PHARMACEUTICALS INC.-AE-2011-000504

PATIENT
  Sex: Female
  Weight: 65 kg

DRUGS (5)
  1. COPEGUS [Concomitant]
     Indication: HEPATITIS C
     Dates: start: 20110623
  2. VX-950 [Suspect]
     Indication: HEPATITIS C
     Route: 048
     Dates: start: 20110607
  3. PEGASYS [Concomitant]
     Indication: HEPATITIS C
     Dates: start: 20110623
  4. GLICLAZIDE [Concomitant]
     Indication: TYPE 2 DIABETES MELLITUS
     Dates: start: 20090101
  5. METFORMIN HCL [Concomitant]
     Indication: TYPE 2 DIABETES MELLITUS
     Dates: start: 20090101

REACTIONS (4)
  - VOMITING [None]
  - ASTHENIA [None]
  - ANAEMIA [None]
  - TREATMENT NONCOMPLIANCE [None]
